FAERS Safety Report 7689737-9 (Version None)
Quarter: 2011Q3

REPORT INFORMATION
  Report Type: 
  Country: None (occurrence: None)
  Receive Date: 20110817
  Receipt Date: 20110816
  Transmission Date: 20111222
  Serious: Yes (Hospitalization, Other)
  Sender: FDA-Public Use
  Company Number: DE-ABBOTT-06P-062-0342033-00

PATIENT
  Sex: Female
  Weight: 79 kg

DRUGS (14)
  1. PREDNISOLONE [Concomitant]
     Dates: start: 20000101
  2. METHOTREXATE [Concomitant]
     Indication: RHEUMATOID ARTHRITIS
     Route: 058
     Dates: start: 20000101
  3. HUMIRA [Suspect]
     Route: 058
     Dates: start: 20070101, end: 20070801
  4. FENTANYL [Concomitant]
     Indication: RHEUMATOID ARTHRITIS
     Dosage: PER HOUR
     Dates: start: 20090801
  5. HUMIRA [Suspect]
     Route: 058
     Dates: start: 20071113
  6. METHOTREXATE SODIUM [Suspect]
     Indication: RHEUMATOID ARTHRITIS
     Dosage: DOSE 20
     Route: 048
     Dates: start: 20000101, end: 20060701
  7. CONJUGATED ESTROGENS [Concomitant]
     Indication: PRODUCT USED FOR UNKNOWN INDICATION
  8. HUMIRA [Suspect]
     Indication: RHEUMATOID ARTHRITIS
     Route: 058
     Dates: start: 20060101, end: 20060701
  9. VALORON [Concomitant]
     Indication: PRODUCT USED FOR UNKNOWN INDICATION
  10. PREDNISOLONE [Concomitant]
     Indication: RHEUMATOID ARTHRITIS
     Route: 048
     Dates: start: 20010801
  11. PREDNISOLONE [Concomitant]
     Route: 048
     Dates: start: 19980101
  12. FOLIC ACID [Concomitant]
     Indication: PRODUCT USED FOR UNKNOWN INDICATION
     Dates: start: 20010801, end: 20060701
  13. METHOTREXATE SODIUM [Suspect]
     Route: 048
     Dates: start: 20070101, end: 20070801
  14. METHOTREXATE SODIUM [Suspect]
     Route: 048
     Dates: start: 20071101

REACTIONS (9)
  - DEPRESSION [None]
  - BREAST CANCER [None]
  - IMPAIRED HEALING [None]
  - BREAST RECONSTRUCTION [None]
  - HEPATIC ENZYME INCREASED [None]
  - INCONTINENCE [None]
  - BRONCHITIS [None]
  - ARTHROSCOPY [None]
  - INFLUENZA LIKE ILLNESS [None]
